FAERS Safety Report 12060903 (Version 2)
Quarter: 2016Q1

REPORT INFORMATION
  Report Type: Spontaneous
  Country: JP (occurrence: JP)
  Receive Date: 20160210
  Receipt Date: 20160315
  Transmission Date: 20160526
  Serious: Yes (Other)
  Sender: FDA-Public Use
  Company Number: JP-PFIZER INC-2016069738

PATIENT
  Age: 71 Year
  Sex: Male

DRUGS (15)
  1. XYZAL [Concomitant]
     Active Substance: LEVOCETIRIZINE DIHYDROCHLORIDE
     Dosage: 5 MG, DAILY
     Route: 048
  2. RINESTERON [Concomitant]
     Active Substance: BETAMETHASONE
     Dosage: 0.5 MG, DAILY
     Route: 048
  3. PANTOSIN [Concomitant]
     Active Substance: PANTETHINE
     Dosage: 1.0 G, DAILY
     Route: 048
  4. ZOSYN [Suspect]
     Active Substance: PIPERACILLIN SODIUM\TAZOBACTAM SODIUM
     Dosage: 9.0 G, UNK
     Route: 041
     Dates: start: 20160121, end: 20160129
  5. LANSOPRAZOLE OD [Concomitant]
     Active Substance: LANSOPRAZOLE
     Dosage: 15 MG, DAILY
     Route: 048
  6. DAIKENCHUTO [Concomitant]
     Active Substance: HERBALS
     Dosage: 10 G, DAILY
     Route: 048
  7. GASMOTIN [Concomitant]
     Active Substance: MOSAPRIDE CITRATE
     Dosage: 10 MG, DAILY
     Route: 048
  8. SIGMART [Concomitant]
     Active Substance: NICORANDIL
     Dosage: 10 MG, DAILY
     Route: 048
  9. SPIRONOLACTONE. [Concomitant]
     Active Substance: SPIRONOLACTONE
     Dosage: 25 MG, DAILY
     Route: 048
  10. KNMG NO.3 [Concomitant]
     Dosage: 1000 ML, DAILY
     Route: 041
  11. VITAMIN B COMPLEX [Concomitant]
     Active Substance: CYANOCOBALAMIN\DEXPANTHENOL\NIACINAMIDE\PYRIDOXINE HYDROCHLORIDE\RIBOFLAVIN 5^-PHOSPHATE SODIUM\THIAMINE HYDROCHLORIDE\VITAMIN B COMPLEX
     Dosage: UNK, ALTERNATE DAY
     Route: 042
  12. LAXOBERON [Concomitant]
     Active Substance: SODIUM PICOSULFATE
     Dosage: 7.5 MG, DAILY
     Route: 048
  13. LYRICA [Concomitant]
     Active Substance: PREGABALIN
     Dosage: 150 MG, DAILY
     Route: 048
  14. HERBAL NOS [Concomitant]
     Active Substance: HERBALS
     Dosage: 5.0 G, DAILY
     Route: 048
  15. ROHYPNOL [Concomitant]
     Active Substance: FLUNITRAZEPAM
     Dosage: 2 MG, DAILY
     Route: 048

REACTIONS (1)
  - Deafness [Unknown]
